FAERS Safety Report 19153252 (Version 2)
Quarter: 2021Q2

REPORT INFORMATION
  Report Type: Other
  Country: IT (occurrence: IT)
  Receive Date: 20210419
  Receipt Date: 20210520
  Transmission Date: 20210717
  Serious: Yes (Hospitalization)
  Sender: FDA-Public Use
  Company Number: IT-MACLEODS PHARMA UK LTD-MAC2021030826

PATIENT

DRUGS (1)
  1. ARIPIPRAZOLE 10 MG TABLET [Suspect]
     Active Substance: ARIPIPRAZOLE
     Indication: SUICIDAL IDEATION
     Dosage: 20 MILLIGRAM, TOTAL, ABUSE / MISUSE
     Route: 048
     Dates: start: 20210325, end: 20210325

REACTIONS (3)
  - Chest discomfort [Recovered/Resolved]
  - Drug abuse [Unknown]
  - Intentional self-injury [Recovered/Resolved]

NARRATIVE: CASE EVENT DATE: 20210325
